FAERS Safety Report 11013723 (Version 2)
Quarter: 2015Q2

REPORT INFORMATION
  Report Type: Spontaneous
  Country: US (occurrence: US)
  Receive Date: 20150411
  Receipt Date: 20150526
  Transmission Date: 20150821
  Serious: No
  Sender: FDA-Public Use
  Company Number: US-JNJFOC-20141110006

PATIENT
  Sex: Male
  Weight: 81.65 kg

DRUGS (6)
  1. FAMOTIDINE. [Concomitant]
     Active Substance: FAMOTIDINE
     Route: 065
  2. BABY ASPIRIN [Concomitant]
     Active Substance: ASPIRIN
     Route: 065
  3. DITROPAN XL [Suspect]
     Active Substance: OXYBUTYNIN CHLORIDE
     Indication: BLADDER SPASM
     Route: 048
  4. DITROPAN XL [Suspect]
     Active Substance: OXYBUTYNIN CHLORIDE
     Indication: CYSTITIS INTERSTITIAL
     Route: 048
  5. TAMSULOSIN [Concomitant]
     Active Substance: TAMSULOSIN
     Route: 065
  6. SULFAMETHOXAZOLE [Concomitant]
     Active Substance: SULFAMETHOXAZOLE
     Route: 065

REACTIONS (2)
  - Urethral pain [Unknown]
  - Bladder pain [Unknown]
